FAERS Safety Report 23532960 (Version 1)
Quarter: 2024Q1

REPORT INFORMATION
  Report Type: Spontaneous
  Country: US (occurrence: None)
  Receive Date: 20240216
  Receipt Date: 20240216
  Transmission Date: 20240410
  Serious: Yes (Disabling)
  Sender: FDA-Public Use
  Company Number: None

PATIENT
  Age: 35 Year
  Sex: Male
  Weight: 87.75 kg

DRUGS (4)
  1. CIPRO [Suspect]
     Active Substance: CIPROFLOXACIN HYDROCHLORIDE
     Indication: Ear infection fungal
     Dosage: FREQUENCY : TWICE A DAY;?
     Route: 048
     Dates: start: 20240103, end: 20240109
  2. B vitamin [Concomitant]
  3. COLLAGEN [Concomitant]
     Active Substance: COLLAGEN
  4. MAGNESIUM [Concomitant]
     Active Substance: MAGNESIUM

REACTIONS (10)
  - Paraesthesia [None]
  - Burning sensation [None]
  - Feeling hot [None]
  - Muscle twitching [None]
  - Anxiety [None]
  - Neuropathy peripheral [None]
  - Erectile dysfunction [None]
  - Arthralgia [None]
  - Brain fog [None]
  - Therapy cessation [None]

NARRATIVE: CASE EVENT DATE: 20240109
